FAERS Safety Report 6682443-9 (Version None)
Quarter: 2010Q2

REPORT INFORMATION
  Report Type: 
  Country: None (occurrence: None)
  Receive Date: 20100415
  Receipt Date: 20100412
  Transmission Date: 20101027
  Serious: Yes (Death, Other)
  Sender: FDA-Public Use
  Company Number: US-ASTRAZENECA-2009SE15087

PATIENT
  Age: 25056 Day
  Sex: Female
  Weight: 113.4 kg

DRUGS (4)
  1. SEROQUEL [Suspect]
     Route: 048
     Dates: start: 20080529
  2. VICODIN [Concomitant]
     Dates: start: 20080529
  3. COREG [Concomitant]
     Dates: start: 20080529
  4. LEXAPRO [Concomitant]
     Dosage: 20
     Dates: start: 20080529

REACTIONS (2)
  - DEATH [None]
  - DIABETES MELLITUS [None]
